FAERS Safety Report 9998335 (Version 1)
Quarter: 2014Q1

REPORT INFORMATION
  Report Type: Spontaneous
  Country: CN (occurrence: CN)
  Receive Date: 20140312
  Receipt Date: 20140312
  Transmission Date: 20141002
  Serious: Yes (Death, Hospitalization)
  Sender: FDA-Public Use
  Company Number: PHHY2014CN026559

PATIENT
  Age: 23 Year
  Sex: Female

DRUGS (1)
  1. PREDNISONE [Suspect]
     Indication: IMMUNOSUPPRESSION
     Dosage: 50-80 MG, UNK

REACTIONS (9)
  - Listeriosis [Fatal]
  - Pyrexia [Fatal]
  - Abdominal pain upper [Fatal]
  - Epistaxis [Fatal]
  - Acute hepatic failure [Unknown]
  - Coma [Unknown]
  - Respiratory failure [Unknown]
  - Hepatic encephalopathy [Unknown]
  - Gastrointestinal haemorrhage [Unknown]
